FAERS Safety Report 9076870 (Version 1)
Quarter: 2013Q1

REPORT INFORMATION
  Report Type: Report from Study
  Country: US (occurrence: US)
  Receive Date: 20130129
  Receipt Date: 20130129
  Transmission Date: 20140127
  Serious: No
  Sender: FDA-Public Use
  Company Number: US-ABBOTT-12P-163-0939227-00

PATIENT
  Age: 33 None
  Sex: Female

DRUGS (3)
  1. HUMIRA 40 MG/0.8 ML PEN [Suspect]
     Indication: PSORIASIS
     Dates: start: 201204
  2. HUMIRA 40 MG/0.8 ML PEN [Suspect]
     Dosage: NOT REPORTED
     Dates: start: 20120521
  3. UNKNOWN COUGH MEDICINE WITH CODEINE [Concomitant]
     Indication: COUGH

REACTIONS (10)
  - Productive cough [Not Recovered/Not Resolved]
  - Productive cough [Recovered/Resolved]
  - Upper respiratory tract infection [Unknown]
  - Cough [Recovered/Resolved]
  - Injection site bruising [Recovered/Resolved]
  - Asthma [Not Recovered/Not Resolved]
  - Sputum discoloured [Recovered/Resolved]
  - Sputum discoloured [Recovered/Resolved]
  - Injection site erythema [Recovered/Resolved]
  - Psoriasis [Not Recovered/Not Resolved]
